FAERS Safety Report 14039546 (Version 2)
Quarter: 2017Q4

REPORT INFORMATION
  Report Type: Spontaneous
  Country: GR (occurrence: GR)
  Receive Date: 20171004
  Receipt Date: 20171102
  Transmission Date: 20180321
  Serious: Yes (Hospitalization, Other)
  Sender: FDA-Public Use
  Company Number: GR-GLAXOSMITHKLINE-GR2017GSK135336

PATIENT
  Age: 67 Year
  Sex: Male

DRUGS (4)
  1. STALEVO [Concomitant]
     Active Substance: CARBIDOPA\ENTACAPONE\LEVODOPA
     Indication: PARKINSONISM
     Dosage: UNK
  2. ZINADOL [Suspect]
     Active Substance: CEFUROXIME AXETIL
     Indication: URINARY TRACT INFECTION
     Dosage: UNK
  3. MINOCIN [Concomitant]
     Active Substance: MINOCYCLINE HYDROCHLORIDE
     Indication: ENCEPHALITIS
     Dosage: UNK
  4. UFEXIL [Concomitant]
     Indication: ENCEPHALITIS
     Dosage: UNK

REACTIONS (4)
  - Yellow skin [Recovered/Resolved]
  - Ocular icterus [Recovered/Resolved]
  - Pancreatic carcinoma [Not Recovered/Not Resolved]
  - Blood bilirubin increased [Unknown]

NARRATIVE: CASE EVENT DATE: 20170903
